FAERS Safety Report 5191841-4 (Version None)
Quarter: 2006Q4

REPORT INFORMATION
  Report Type: 
  Country: None (occurrence: None)
  Receive Date: 20061218
  Receipt Date: 20061207
  Transmission Date: 20070319
  Serious: Yes (Other)
  Sender: FDA-Public Use
  Company Number: HQWYE236801SEP06

PATIENT
  Age: 61 Year
  Sex: Male

DRUGS (5)
  1. PANTOPRAZOLE SODIUM [Suspect]
     Indication: OESOPHAGITIS
     Dosage: 40 MG 1X PER 1 DAY ORAL
     Route: 048
     Dates: start: 19920101
  2. ALLOPURINOL [Concomitant]
  3. CONCOR (BISOPROLOL) [Concomitant]
  4. ASPIRIN [Concomitant]
  5. MARCUMAR [Concomitant]

REACTIONS (1)
  - NON-HODGKIN'S LYMPHOMA [None]
